FAERS Safety Report 9232242 (Version 3)
Quarter: 2013Q3

REPORT INFORMATION
  Report Type: Spontaneous
  Country: JP (occurrence: JP)
  Receive Date: 20130415
  Receipt Date: 20130701
  Transmission Date: 20140515
  Serious: Yes (Hospitalization)
  Sender: FDA-Public Use
  Company Number: JP-AMGEN-JPNSP2013025768

PATIENT
  Age: 74 Year
  Sex: Female
  Weight: 74 kg

DRUGS (27)
  1. GRAN [Suspect]
     Indication: NEUTROPHIL COUNT DECREASED
     Dosage: 75 MUG, QD
     Route: 058
     Dates: start: 20130326, end: 20130327
  2. SOLULACT [Concomitant]
     Dosage: UNK
     Route: 041
  3. SOLULACT [Concomitant]
     Dosage: 500 ML, UNK
     Route: 041
     Dates: start: 20130326, end: 20130401
  4. LIVALO [Concomitant]
     Indication: DYSLIPIDAEMIA
     Dosage: 1 MG, QD
     Route: 048
  5. PLAVIX [Concomitant]
     Indication: HYPERALDOSTERONISM
     Dosage: 25 MG, QD
     Route: 048
  6. AMLODIPINE                         /00972402/ [Concomitant]
     Dosage: UNK
     Route: 048
  7. FEBURIC [Concomitant]
     Indication: HYPERALDOSTERONISM
     Dosage: 10 MG, QD
     Route: 048
  8. CRAVIT [Concomitant]
     Indication: URINARY TRACT INFECTION
     Dosage: 500 MG, QD
     Route: 048
     Dates: start: 20130326, end: 20130327
  9. SENNOSIDE                          /00571901/ [Concomitant]
     Dosage: UNK
     Route: 048
  10. ARTIST [Concomitant]
     Indication: HYPERTENSION
     Dosage: 20 MG, QD
     Route: 048
  11. DIART [Concomitant]
     Indication: HYPERALDOSTERONISM
     Dosage: UNK
     Route: 048
  12. DIART [Concomitant]
     Dosage: 15 MG, QD
     Route: 048
  13. SELARA [Concomitant]
     Indication: HYPERTENSION
     Dosage: UNK
     Route: 048
  14. SELARA [Concomitant]
     Dosage: 25 MG, QD
     Route: 048
  15. CLARITIN                           /00917501/ [Concomitant]
     Dosage: UNK
     Route: 048
  16. LYRICA [Concomitant]
     Indication: TRIGEMINAL NEURALGIA
     Dosage: UNK
     Route: 048
  17. LYRICA [Concomitant]
     Dosage: 75 MG, BID
     Route: 048
  18. ARGAMATE [Concomitant]
     Indication: HYPERALDOSTERONISM
     Dosage: UNK
     Route: 048
  19. ARGAMATE [Concomitant]
     Dosage: 25 MG, BID
     Route: 048
  20. DEPAKENE                           /00228502/ [Concomitant]
     Dosage: UNK
     Route: 048
  21. URALYT                             /06402701/ [Concomitant]
     Dosage: UNK
     Route: 048
  22. CEFTAZIDIME [Concomitant]
     Indication: NEUTROPENIA
     Dosage: 1 G, BID
     Route: 041
     Dates: start: 20130326, end: 20130401
  23. AMLODIPINE [Concomitant]
     Indication: HYPERTENSION
     Dosage: 5 MG, QD
     Route: 048
  24. SENNOSIDE                          /00571901/ [Concomitant]
     Indication: CONSTIPATION
     Dosage: 24 MG, QD
     Route: 048
  25. CLARITIN                           /00413701/ [Concomitant]
     Indication: HYPERALDOSTERONISM
     Dosage: 10 MG, QD
     Route: 048
  26. DEPAKENE                           /00228501/ [Concomitant]
     Indication: TRIGEMINAL NEURALGIA
     Dosage: 200 MG, BID
     Route: 048
  27. URALYT                             /01779901/ [Concomitant]
     Indication: RENAL IMPAIRMENT
     Dosage: 2 DF, TID
     Route: 048

REACTIONS (1)
  - Anaphylactic shock [Recovered/Resolved]
